FAERS Safety Report 6111503-6 (Version None)
Quarter: 2009Q1

REPORT INFORMATION
  Report Type: 
  Country: None (occurrence: None)
  Receive Date: 20090309
  Receipt Date: 20090305
  Transmission Date: 20090719
  Serious: Yes (Life-Threatening, Hospitalization, Other)
  Sender: FDA-Public Use
  Company Number: 2008-01728

PATIENT
  Age: 60 Year
  Sex: Female
  Weight: 70 kg

DRUGS (10)
  1. VELCADE [Suspect]
     Indication: MULTIPLE MYELOMA
     Dosage: 1.3 MG/M2, INTRAVENOUS
     Route: 042
     Dates: start: 20080513, end: 20080516
  2. DOXORUBICIN HCL [Suspect]
     Indication: MULTIPLE MYELOMA
     Dosage: 9 MG/M2, INTRAVENOUS
     Route: 042
     Dates: start: 20080513, end: 20080516
  3. DEXAMETHASONE TAB [Suspect]
     Indication: MULTIPLE MYELOMA
     Dosage: 40 MG, ORAL
     Route: 048
     Dates: start: 20080513, end: 20080516
  4. ALLOPURINOL [Concomitant]
  5. OXYCONTIN [Concomitant]
  6. ACETAMINOPHEN [Concomitant]
  7. PANTOPRAZOLE SODIUM [Concomitant]
  8. SULFAMETHOXAZOLE W/TRIMETHOPRIM (SULFAMETHOXAZOLE, TRIMETHOPRIM) [Concomitant]
  9. FLUCONAZOLE [Concomitant]
  10. VALACYCLOVIR HCL [Concomitant]

REACTIONS (1)
  - EPILEPSY [None]
